FAERS Safety Report 5365602-7 (Version None)
Quarter: 2007Q2

REPORT INFORMATION
  Report Type: 
  Country: None (occurrence: None)
  Receive Date: 20070621
  Receipt Date: 20070616
  Transmission Date: 20071010
  Serious: Yes (Hospitalization)
  Sender: FDA-Public Use
  Company Number: TR-AVENTIS-200715425GDDC

PATIENT
  Sex: Male
  Weight: 77 kg

DRUGS (6)
  1. LANTUS [Suspect]
     Route: 058
     Dates: start: 20070603
  2. AUTOPEN 24 [Suspect]
  3. HUMALOG [Suspect]
     Route: 058
     Dates: start: 20070603
  4. HUMALOG [Suspect]
     Route: 058
     Dates: start: 20070603
  5. HUMALOG [Suspect]
     Route: 058
     Dates: start: 20070603
  6. LEVOTIRON [Concomitant]
     Indication: HYPERTHYROIDISM
     Dosage: DOSE QUANTITY: 1.75
     Route: 048
     Dates: start: 20070603

REACTIONS (2)
  - MUSCLE SPASMS [None]
  - OEDEMA PERIPHERAL [None]
